FAERS Safety Report 18528488 (Version 1)
Quarter: 2020Q4

REPORT INFORMATION
  Report Type: Spontaneous
  Country: US (occurrence: US)
  Receive Date: 20201120
  Receipt Date: 20201120
  Transmission Date: 20210114
  Serious: Yes (Hospitalization, Disabling, Other)
  Sender: FDA-Public Use
  Company Number: US-PURDUE-USA-2020-0173394

PATIENT
  Sex: Male

DRUGS (2)
  1. OXYCONTIN [Suspect]
     Active Substance: OXYCODONE HYDROCHLORIDE
     Indication: PAIN
     Dosage: 80 MG, BID
     Route: 048
  2. MS CONTIN [Suspect]
     Active Substance: MORPHINE SULFATE
     Indication: PRODUCT USED FOR UNKNOWN INDICATION
     Dosage: UNK
     Route: 048

REACTIONS (11)
  - Gastrointestinal haemorrhage [Unknown]
  - Disability [Unknown]
  - Diarrhoea [Unknown]
  - Anxiety [Unknown]
  - Vomiting [Unknown]
  - Drug withdrawal syndrome [Unknown]
  - Mental status changes [Unknown]
  - Nausea [Unknown]
  - Drug dependence [Unknown]
  - Ill-defined disorder [Unknown]
  - Dyspnoea [Unknown]
